FAERS Safety Report 12569262 (Version 1)
Quarter: 2016Q3

REPORT INFORMATION
  Report Type: Spontaneous
  Country: US (occurrence: None)
  Receive Date: 20160718
  Receipt Date: 20160718
  Transmission Date: 20161109
  Serious: No
  Sender: FDA-Public Use
  Company Number: None

PATIENT
  Age: 77 Year
  Sex: Male

DRUGS (2)
  1. ZYTIGA [Suspect]
     Active Substance: ABIRATERONE ACETATE
     Indication: PROSTATE CANCER
     Dosage: 250MG 4- QD PO
     Route: 048
     Dates: start: 20160716
  2. ZYTIGA [Suspect]
     Active Substance: ABIRATERONE ACETATE
     Indication: POST PROCEDURAL COMPLICATION
     Dosage: 250MG 4- QD PO
     Route: 048
     Dates: start: 20160716

REACTIONS (1)
  - Amnesia [None]

NARRATIVE: CASE EVENT DATE: 2016
